FAERS Safety Report 10246928 (Version 2)
Quarter: 2014Q3

REPORT INFORMATION
  Report Type: Spontaneous
  Country: IT (occurrence: IT)
  Receive Date: 20140619
  Receipt Date: 20140908
  Transmission Date: 20150326
  Serious: Yes (Hospitalization)
  Sender: FDA-Public Use
  Company Number: IT-NOVOPROD-413571

PATIENT
  Age: 70 Year
  Sex: Male

DRUGS (5)
  1. EFFEXOR [Concomitant]
     Active Substance: VENLAFAXINE HYDROCHLORIDE
     Dosage: UNK
     Route: 065
  2. ACTRAPID [Suspect]
     Active Substance: INSULIN HUMAN
     Indication: DIABETES MELLITUS
     Dosage: 18 U, QD
     Route: 058
     Dates: start: 20140526
  3. PRAZENE [Concomitant]
     Active Substance: PRAZEPAM
     Dosage: UNK
     Route: 065
  4. STILNOX [Concomitant]
     Active Substance: ZOLPIDEM TARTRATE
     Dosage: UNK
     Route: 065
  5. HUMULIN NOS [Suspect]
     Active Substance: INSULIN HUMAN
     Indication: DIABETES MELLITUS
     Dosage: 20 U, QD
     Route: 058
     Dates: start: 20140526

REACTIONS (4)
  - Cerebral haemorrhage [Recovered/Resolved]
  - Hypoglycaemia [Recovered/Resolved]
  - Presyncope [Recovered/Resolved]
  - Head injury [Recovered/Resolved]

NARRATIVE: CASE EVENT DATE: 20140604
